FAERS Safety Report 20376781 (Version 3)
Quarter: 2022Q2

REPORT INFORMATION
  Report Type: Other
  Country: US (occurrence: None)
  Receive Date: 20220125
  Receipt Date: 20220406
  Transmission Date: 20220721
  Serious: Yes (Hospitalization)
  Sender: FDA-Public Use
  Company Number: US-ROCHE-3004987

PATIENT
  Age: 48 Year
  Sex: Female
  Weight: 38.590 kg

DRUGS (9)
  1. OCREVUS [Suspect]
     Active Substance: OCRELIZUMAB
     Indication: Relapsing multiple sclerosis
     Dosage: ONE IN 6 MONTHS
     Route: 042
     Dates: start: 20210514
  2. OCREVUS [Suspect]
     Active Substance: OCRELIZUMAB
     Indication: Progressive multiple sclerosis
     Route: 042
     Dates: start: 20210430
  3. MIRALAX [Concomitant]
     Active Substance: POLYETHYLENE GLYCOL 3350
  4. OXYBUTYNIN [Concomitant]
     Active Substance: OXYBUTYNIN
     Route: 048
  5. BACLOFEN [Concomitant]
     Active Substance: BACLOFEN
  6. TEGRETOL [Concomitant]
     Active Substance: CARBAMAZEPINE
  7. NEURONTIN [Concomitant]
     Active Substance: GABAPENTIN
  8. CODEINE [Concomitant]
     Active Substance: CODEINE
     Route: 048
     Dates: start: 2022
  9. BOTOX [Concomitant]
     Active Substance: ONABOTULINUMTOXINA
     Dates: start: 2022

REACTIONS (8)
  - Constipation [Unknown]
  - Urinary tract infection [Recovered/Resolved]
  - Asthenia [Unknown]
  - Blood potassium decreased [Unknown]
  - Pain [Not Recovered/Not Resolved]
  - Tachypnoea [Not Recovered/Not Resolved]
  - Hyperhidrosis [Not Recovered/Not Resolved]
  - Spinal deformity [Not Recovered/Not Resolved]

NARRATIVE: CASE EVENT DATE: 20211101
